FAERS Safety Report 24888127 (Version 2)
Quarter: 2025Q1

REPORT INFORMATION
  Report Type: Spontaneous
  Country: PT (occurrence: PT)
  Receive Date: 20250127
  Receipt Date: 20250203
  Transmission Date: 20250409
  Serious: Yes (Other)
  Sender: GILEAD
  Company Number: PT-GILEAD-2025-0700945

PATIENT
  Age: 66 Year
  Sex: Male

DRUGS (2)
  1. BIKTARVY [Suspect]
     Active Substance: BICTEGRAVIR SODIUM\EMTRICITABINE\TENOFOVIR ALAFENAMIDE FUMARATE
     Indication: HIV infection
     Route: 065
     Dates: start: 202012
  2. LEVETIRACETAM [Concomitant]
     Active Substance: LEVETIRACETAM

REACTIONS (3)
  - Enterobacter pneumonia [Unknown]
  - Pneumonia cytomegaloviral [Unknown]
  - Brain abscess [Unknown]

NARRATIVE: CASE EVENT DATE: 20220901
